FAERS Safety Report 20202378 (Version 1)
Quarter: 2021Q4

REPORT INFORMATION
  Report Type: Spontaneous
  Country: US (occurrence: US)
  Receive Date: 20211217
  Receipt Date: 20211217
  Transmission Date: 20220303
  Serious: No
  Sender: FDA-Public Use
  Company Number: US-REGENERON PHARMACEUTICALS, INC.-2021-90946

PATIENT

DRUGS (2)
  1. EYLEA [Suspect]
     Active Substance: AFLIBERCEPT
     Indication: Eye haemorrhage
     Dosage: UNK, RIGHT EYE
     Route: 031
  2. EYLEA [Suspect]
     Active Substance: AFLIBERCEPT
     Indication: Eye haemorrhage
     Dosage: UNK, LEFT EYE
     Route: 031
     Dates: start: 20210929

REACTIONS (2)
  - Off label use [Unknown]
  - Drug ineffective [Unknown]
